FAERS Safety Report 8154275-6 (Version None)
Quarter: 2012Q1

REPORT INFORMATION
  Report Type: 
  Country: None (occurrence: None)
  Receive Date: 20120221
  Receipt Date: 20120215
  Transmission Date: 20120608
  Serious: Yes (Other)
  Sender: FDA-Public Use
  Company Number: US-AMGEN-QUU421698

PATIENT
  Age: 67 Year
  Sex: Female
  Weight: 117.91 kg

DRUGS (12)
  1. SIMVASTATIN [Concomitant]
  2. LUTEIN                             /01638501/ [Concomitant]
  3. PROBIOTICS [Concomitant]
  4. COQ10                              /00517201/ [Concomitant]
  5. CALCIUM [Concomitant]
     Dosage: 1200 MG, QD
     Route: 048
  6. VITAMIN D [Concomitant]
  7. GINKO BILOBA [Concomitant]
  8. ENBREL [Suspect]
     Indication: PSORIASIS
     Dosage: UNK UNK, UNK
     Dates: start: 20051015, end: 20100501
  9. EXCEDRIN                           /00110301/ [Concomitant]
     Dosage: UNK UNK, QD
  10. GLUCOSAMINE + CHONDROITIN          /01430901/ [Concomitant]
  11. CITALOPRAM HYDROBROMIDE [Concomitant]
  12. MULTIVITAMIN                       /00097801/ [Concomitant]

REACTIONS (1)
  - BREAST CANCER [None]
